FAERS Safety Report 11804792 (Version 1)
Quarter: 2015Q4

REPORT INFORMATION
  Report Type: Report from Study
  Country: US (occurrence: US)
  Receive Date: 20151205
  Receipt Date: 20151205
  Transmission Date: 20160305
  Serious: No
  Sender: FDA-Public Use
  Company Number: PHEH2015US025330

PATIENT

DRUGS (1)
  1. ZYKADIA [Suspect]
     Active Substance: CERITINIB
     Indication: LUNG NEOPLASM MALIGNANT
     Dosage: 750 MG, QD
     Route: 048
     Dates: start: 20150324

REACTIONS (1)
  - Diarrhoea [Unknown]
